FAERS Safety Report 26082940 (Version 1)
Quarter: 2025Q4

REPORT INFORMATION
  Report Type: Spontaneous
  Country: EU (occurrence: EU)
  Receive Date: 20251124
  Receipt Date: 20251124
  Transmission Date: 20260117
  Serious: Yes (Hospitalization, Other)
  Sender: CHEPLAPHARM
  Company Number: None

PATIENT
  Age: 49 Year
  Sex: Male

DRUGS (16)
  1. DOXORUBICIN [Suspect]
     Active Substance: DOXORUBICIN
     Indication: Diffuse large B-cell lymphoma stage IV
     Dosage: CHOP REGIMEN (CYCLOPHOSPHAMIDE, DOXORUBICIN, VINCRISTINE, PREDNISONE)
  2. VALGANCICLOVIR [Suspect]
     Active Substance: VALGANCICLOVIR
     Indication: Cytomegalovirus chorioretinitis
     Dates: start: 202112
  3. VALGANCICLOVIR [Suspect]
     Active Substance: VALGANCICLOVIR
     Indication: Cytomegalovirus gastrointestinal infection
     Dates: start: 202112
  4. VALGANCICLOVIR [Suspect]
     Active Substance: VALGANCICLOVIR
     Indication: Pneumonia cytomegaloviral
     Dates: start: 202112
  5. GANCICLOVIR [Suspect]
     Active Substance: GANCICLOVIR
     Indication: Cytomegalovirus chorioretinitis
     Dates: start: 202112
  6. GANCICLOVIR [Suspect]
     Active Substance: GANCICLOVIR
     Indication: Cytomegalovirus gastrointestinal infection
     Dates: start: 202112
  7. GANCICLOVIR [Suspect]
     Active Substance: GANCICLOVIR
     Indication: Pneumonia cytomegaloviral
     Dates: start: 202112
  8. CYCLOPHOSPHAMIDE [Suspect]
     Active Substance: CYCLOPHOSPHAMIDE
     Indication: Diffuse large B-cell lymphoma stage IV
     Dosage: CHOP REGIMEN (CYCLOPHOSPHAMIDE, DOXORUBICIN, VINCRISTINE, PREDNISONE)
  9. VINCRISTINE [Suspect]
     Active Substance: VINCRISTINE
     Indication: Diffuse large B-cell lymphoma stage IV
     Dosage: CHOP REGIMEN (CYCLOPHOSPHAMIDE, DOXORUBICIN, VINCRISTINE, PREDNISONE)
  10. PREDNISONE [Suspect]
     Active Substance: PREDNISONE
     Indication: Diffuse large B-cell lymphoma stage IV
     Dosage: CHOP REGIMEN (CYCLOPHOSPHAMIDE, DOXORUBICIN, VINCRISTINE, PREDNISONE)
  11. SULFAMETHOXAZOLE\TRIMETHOPRIM [Suspect]
     Active Substance: SULFAMETHOXAZOLE\TRIMETHOPRIM
     Indication: Pneumocystis jirovecii pneumonia
     Dates: start: 202112
  12. BICTEGRAVIR\EMTRICITABINE\TENOFOVIR ALAFENAMIDE [Suspect]
     Active Substance: BICTEGRAVIR\EMTRICITABINE\TENOFOVIR ALAFENAMIDE
     Indication: Antiretroviral therapy
     Dates: start: 202112
  13. FLUCONAZOLE [Suspect]
     Active Substance: FLUCONAZOLE
     Indication: Antifungal prophylaxis
     Dates: start: 202112
  14. METHOTREXATE [Suspect]
     Active Substance: METHOTREXATE
  15. CYTARABINE [Suspect]
     Active Substance: CYTARABINE
  16. DEXAMETHASONE [Suspect]
     Active Substance: DEXAMETHASONE
     Indication: Prophylaxis

REACTIONS (6)
  - Febrile neutropenia [Unknown]
  - COVID-19 [Unknown]
  - Acute respiratory failure [Unknown]
  - Atelectasis [Unknown]
  - Pleural effusion [Unknown]
  - Off label use [Unknown]
